FAERS Safety Report 6307025-X (Version None)
Quarter: 2009Q3

REPORT INFORMATION
  Report Type: 
  Country: None (occurrence: None)
  Receive Date: 20090812
  Receipt Date: 20090730
  Transmission Date: 20100115
  Serious: Yes (Other)
  Sender: FDA-Public Use
  Company Number: PHHY2009BR31829

PATIENT
  Sex: Female
  Weight: 82 kg

DRUGS (3)
  1. DIOVAN AMLO FIX [Suspect]
     Indication: HYPERTENSION
     Route: 048
  2. EXFORGE [Suspect]
     Dosage: 160/5 MG
  3. PURAN T4 [Concomitant]
     Indication: HYPOTHYROIDISM
     Dosage: 1 TABLET/DAY

REACTIONS (9)
  - BLINDNESS [None]
  - DRUG DISPENSING ERROR [None]
  - EYE LASER SURGERY [None]
  - EYE PAIN [None]
  - MEMORY IMPAIRMENT [None]
  - RETINAL HAEMORRHAGE [None]
  - RETINAL TEAR [None]
  - VISION BLURRED [None]
  - VISUAL IMPAIRMENT [None]
